FAERS Safety Report 7987712-8 (Version None)
Quarter: 2011Q4

REPORT INFORMATION
  Report Type: 
  Country: None (occurrence: None)
  Receive Date: 20111216
  Receipt Date: 20110428
  Transmission Date: 20120403
  Serious: No
  Sender: FDA-Public Use
  Company Number: US-BRISTOL-MYERS SQUIBB COMPANY-15705833

PATIENT
  Age: 6 Year
  Sex: Male
  Weight: 19 kg

DRUGS (2)
  1. ABILIFY [Suspect]
     Indication: ATTENTION DEFICIT/HYPERACTIVITY DISORDER
     Dosage: FOR 1 WEEK,INCREASED 5MG
  2. FLOVENT [Concomitant]
     Indication: ASTHMA

REACTIONS (5)
  - MUSCLE SPASMS [None]
  - DROOLING [None]
  - AFFECT LABILITY [None]
  - TREMOR [None]
  - INCREASED APPETITE [None]
